FAERS Safety Report 7488331-2 (Version None)
Quarter: 2011Q2

REPORT INFORMATION
  Report Type: 
  Country: None (occurrence: None)
  Receive Date: 20110518
  Receipt Date: 20110505
  Transmission Date: 20111010
  Serious: Yes (Other)
  Sender: FDA-Public Use
  Company Number: US-ELI_LILLY_AND_COMPANY-US201105002270

PATIENT
  Sex: Female

DRUGS (8)
  1. BYSTOLIC [Concomitant]
     Dosage: 10 MG, UNKNOWN
     Route: 065
  2. PERCOCET [Concomitant]
     Dosage: UNK, UNKNOWN
     Route: 065
  3. CYMBALTA [Suspect]
     Indication: FIBROMYALGIA
     Dosage: 60 MG, QD
     Route: 065
     Dates: start: 20100101, end: 20110428
  4. LOTRIL                             /00574902/ [Concomitant]
     Dosage: UNK, QD
     Route: 065
  5. IMMUNE GLOBULIN NOS [Concomitant]
     Dosage: UNK, WEEKLY (1/W)
     Route: 042
  6. DICLOFENAC SODIUM W/MISOPROSTOL [Concomitant]
     Dosage: UNK, UNKNOWN
     Route: 065
  7. ALLEGRA [Concomitant]
     Dosage: UNK, UNKNOWN
     Route: 065
  8. LORAZEPAM [Concomitant]
     Dosage: UNK, UNKNOWN
     Route: 065

REACTIONS (7)
  - SKIN ULCER [None]
  - WOUND INFECTION STAPHYLOCOCCAL [None]
  - ARTHRALGIA [None]
  - PSEUDOMONAS INFECTION [None]
  - HYPERSENSITIVITY [None]
  - LACRIMATION INCREASED [None]
  - PYREXIA [None]
